FAERS Safety Report 5466677-7 (Version None)
Quarter: 2007Q3

REPORT INFORMATION
  Report Type: 
  Country: None (occurrence: None)
  Receive Date: 20070920
  Receipt Date: 20070906
  Transmission Date: 20080115
  Serious: Yes (Other)
  Sender: FDA-Public Use
  Company Number: 161177ISR

PATIENT
  Age: 77 Year
  Sex: Male

DRUGS (4)
  1. ENALAPRIL MALEATE [Suspect]
     Indication: HYPERTENSION
     Dosage: 10 MG ORAL
     Route: 048
  2. SIMVASTATIN [Suspect]
     Indication: HYPERCHOLESTEROLAEMIA
     Dosage: 20MG  ORAL
     Route: 048
  3. TAMULOSIN [Suspect]
     Indication: PROSTATIC DISORDER
     Dosage: 400 MG  ORAL
     Route: 048
  4. CLOPIDOGREL [Suspect]
     Indication: ANTICOAGULANT THERAPY
     Dosage: 75MG
     Route: 048

REACTIONS (2)
  - HALLUCINATION [None]
  - NIGHTMARE [None]
